FAERS Safety Report 21344207 (Version 1)
Quarter: 2022Q3

REPORT INFORMATION
  Report Type: Spontaneous
  Country: CN (occurrence: CN)
  Receive Date: 20220916
  Receipt Date: 20220916
  Transmission Date: 20221027
  Serious: Yes (Hospitalization, Other)
  Sender: FDA-Public Use
  Company Number: CN-MSNLABS-2022MSNLIT01071

PATIENT

DRUGS (2)
  1. CAPECITABINE [Suspect]
     Active Substance: CAPECITABINE
     Indication: Metastatic squamous cell carcinoma
     Dosage: 2 CYCLES
     Route: 065
     Dates: start: 201903
  2. NEDAPLATIN [Suspect]
     Active Substance: NEDAPLATIN
     Indication: Metastatic squamous cell carcinoma
     Dosage: 2 CYCLES
     Route: 065
     Dates: start: 201903

REACTIONS (2)
  - Disease progression [Unknown]
  - Skin ulcer [Unknown]

NARRATIVE: CASE EVENT DATE: 20190601
